FAERS Safety Report 4536151-0 (Version None)
Quarter: 2004Q4

REPORT INFORMATION
  Report Type: 
  Country: None (occurrence: None)
  Receive Date: 20041220
  Receipt Date: 20041117
  Transmission Date: 20050328
  Serious: Yes (Other)
  Sender: FDA-Public Use
  Company Number: 2004097452

PATIENT
  Age: 53 Year
  Sex: Female
  Weight: 80.7403 kg

DRUGS (14)
  1. CELEBREX [Suspect]
     Indication: REFLEX SYMPATHETIC DYSTROPHY
     Dosage: 200 MG (200 MG, 1 IN 1 D), ORAL
     Route: 048
     Dates: start: 20040101, end: 20041001
  2. ROFECOXIB [Suspect]
     Indication: ILL-DEFINED DISORDER
  3. ASPIRIN [Concomitant]
  4. CITALOPRAM HYDROBROMIDE [Concomitant]
  5. PIOGLITAZONE HCL [Concomitant]
  6. LEVOTHYROXINE SODIUM [Concomitant]
  7. LISINOPRIL [Concomitant]
  8. ATENOLOL [Concomitant]
  9. CLOPIDOGREL BISULFATE [Concomitant]
  10. SIMVASTATIN [Concomitant]
  11. OXYCODONE HYDROCHLORIDE AND ACETAMINOPHEN [Concomitant]
  12. NITROGLYCERIN [Concomitant]
  13. BACLOFEN [Concomitant]
  14. EZETIMIBE (EZETIMIBE) [Concomitant]

REACTIONS (7)
  - ANGINA PECTORIS [None]
  - CARDIAC STRESS TEST ABNORMAL [None]
  - CORONARY ARTERY DISEASE [None]
  - DISEASE RECURRENCE [None]
  - DYSPNOEA [None]
  - FEELING ABNORMAL [None]
  - VASCULAR GRAFT OCCLUSION [None]
